FAERS Safety Report 7474735-0 (Version None)
Quarter: 2011Q1

REPORT INFORMATION
  Report Type: 
  Country: None (occurrence: None)
  Receive Date: 20110302
  Receipt Date: 20100823
  Transmission Date: 20110831
  Serious: Yes (Hospitalization, Other)
  Sender: FDA-Public Use
  Company Number: 163-21880-10042167

PATIENT
  Age: 71 Year
  Sex: Male

DRUGS (4)
  1. REVLIMID [Suspect]
     Indication: MULTIPLE MYELOMA
     Dosage: 15 MG, QD ON DAYS 1-21, OFF DAYS 22-28, PO
     Route: 048
     Dates: start: 20100317, end: 20100520
  2. RBC TRANSFUSION (BLOOD CELLS, PACKED HUMAN) [Concomitant]
  3. ACETAMINOPHEN [Concomitant]
  4. BENADRYL [Concomitant]

REACTIONS (4)
  - NEUTROPENIA [None]
  - PNEUMONIA [None]
  - STOMATITIS [None]
  - HAEMOLYTIC TRANSFUSION REACTION [None]
